FAERS Safety Report 5692930-8 (Version None)
Quarter: 2008Q2

REPORT INFORMATION
  Report Type: 
  Country: None (occurrence: None)
  Receive Date: 20080328
  Receipt Date: 20070801
  Transmission Date: 20081010
  Serious: Yes (Other)
  Sender: FDA-Public Use
  Company Number: HQWYE350802AUG07

PATIENT
  Age: 36 Year
  Sex: Female
  Weight: 94.89 kg

DRUGS (6)
  1. PROTONIX [Suspect]
     Indication: NAUSEA
     Dosage: 40 MG 1X PER 1 DAY, ORAL
     Route: 048
     Dates: start: 20070712, end: 20070716
  2. PROTONIX [Suspect]
     Indication: VOMITING
     Dosage: 40 MG 1X PER 1 DAY, ORAL
     Route: 048
     Dates: start: 20070712, end: 20070716
  3. TYLENOL W/ CODEINE NO. 3 [Concomitant]
  4. ALDOMET [Concomitant]
  5. GLUCOPHAGE [Concomitant]
  6. INSULIN (INSULIN) [Concomitant]

REACTIONS (2)
  - DRUG EXPOSURE DURING PREGNANCY [None]
  - DRUG SCREEN FALSE POSITIVE [None]
